FAERS Safety Report 15463147 (Version 2)
Quarter: 2018Q4

REPORT INFORMATION
  Report Type: Spontaneous
  Country: DE (occurrence: DE)
  Receive Date: 20181004
  Receipt Date: 20181012
  Transmission Date: 20190204
  Serious: Yes (Hospitalization, Other)
  Sender: FDA-Public Use
  Company Number: DE-AUROBINDO-AUR-APL-2016-04087

PATIENT
  Age: 86 Year
  Sex: Female

DRUGS (1)
  1. ALENDRONATE 70 MG TABLETS [Suspect]
     Active Substance: ALENDRONATE SODIUM
     Indication: OSTEOPENIA
     Dosage: 70 MG, EVERY WEEK
     Route: 048

REACTIONS (4)
  - Dysphagia [Recovered/Resolved]
  - Mouth ulceration [Recovered/Resolved]
  - Mucosal ulceration [Recovered/Resolved]
  - Wrong technique in product usage process [Unknown]
